FAERS Safety Report 22659942 (Version 1)
Quarter: 2023Q2

REPORT INFORMATION
  Report Type: Spontaneous
  Country: GB (occurrence: GB)
  Receive Date: 20230630
  Receipt Date: 20230630
  Transmission Date: 20230722
  Serious: Yes (Hospitalization, Disabling, Other)
  Sender: FDA-Public Use
  Company Number: None

PATIENT
  Age: 36 Year
  Sex: Female

DRUGS (3)
  1. TACROLIMUS [Suspect]
     Active Substance: TACROLIMUS
     Indication: Eczema
     Dates: end: 20230313
  2. MOMETASONE FUROATE [Suspect]
     Active Substance: MOMETASONE FUROATE
     Indication: Eczema
     Dates: start: 2016, end: 20230313
  3. HYDROCORTONE [Suspect]
     Active Substance: HYDROCORTISONE
     Indication: Eczema
     Dates: end: 20230313

REACTIONS (1)
  - Topical steroid withdrawal reaction [Not Recovered/Not Resolved]
